FAERS Safety Report 5216903-4 (Version None)
Quarter: 2007Q1

REPORT INFORMATION
  Report Type: 
  Country: None (occurrence: None)
  Receive Date: 20070124
  Receipt Date: 20070116
  Transmission Date: 20070707
  Serious: Yes (Hospitalization, Other)
  Sender: FDA-Public Use
  Company Number: CA-JNJFOC-20060701805

PATIENT
  Sex: Female
  Weight: 60.5 kg

DRUGS (38)
  1. INFLIXIMAB [Suspect]
     Route: 042
  2. INFLIXIMAB [Suspect]
     Route: 042
  3. INFLIXIMAB [Suspect]
     Indication: CROHN'S DISEASE
     Route: 042
  4. METHOTREXATE [Suspect]
     Route: 050
  5. METHOTREXATE [Suspect]
     Route: 050
  6. METHOTREXATE [Suspect]
     Route: 050
  7. METHOTREXATE [Suspect]
     Route: 050
  8. METHOTREXATE [Suspect]
     Route: 050
  9. METHOTREXATE [Suspect]
     Route: 050
  10. METHOTREXATE [Suspect]
     Route: 050
  11. METHOTREXATE [Suspect]
     Route: 050
  12. METHOTREXATE [Suspect]
     Indication: CROHN'S DISEASE
     Route: 050
  13. VITAMIN TAB [Concomitant]
  14. ANALGESICS [Concomitant]
  15. CONTRACEPTIVES [Concomitant]
     Route: 048
  16. ANXIOLYTIC [Concomitant]
  17. CLARITIN [Concomitant]
     Indication: SEASONAL ALLERGY
     Route: 048
  18. SYNPHASIC [Concomitant]
     Route: 048
  19. CIPRALEX [Concomitant]
     Indication: ANXIETY
     Route: 048
  20. FOLIC ACID [Concomitant]
     Route: 058
  21. VITAMIN B-12 [Concomitant]
     Indication: VITAMIN B12 DEFICIENCY
     Route: 058
  22. TYLENOL ES [Concomitant]
     Route: 048
  23. VITAMIN AND MINERAL PRENATAL SUPPLEMENT W/ FOLIC ACID CAP [Concomitant]
     Route: 048
  24. IBUPROFEN [Concomitant]
     Indication: ARTHRALGIA
     Route: 048
  25. VENTOLIN [Concomitant]
     Indication: ASTHMA
     Route: 055
  26. SYMBICORT [Concomitant]
     Indication: ASTHMA
     Route: 055
  27. LIFE TIMES LIQUID [Concomitant]
     Route: 048
  28. PREDNISONE TAB [Concomitant]
  29. PREDNISONE TAB [Concomitant]
  30. PREDNISONE TAB [Concomitant]
  31. PREDNISONE TAB [Concomitant]
  32. PREDNISONE TAB [Concomitant]
  33. PREDNISONE TAB [Concomitant]
  34. PREDNISONE TAB [Concomitant]
  35. PREDNISONE TAB [Concomitant]
  36. PREDNISONE TAB [Concomitant]
  37. PREDNISONE TAB [Concomitant]
  38. PREDNISONE TAB [Concomitant]

REACTIONS (2)
  - DRUG TOXICITY [None]
  - PNEUMOTHORAX [None]
